FAERS Safety Report 7027671-8 (Version None)
Quarter: 2010Q4

REPORT INFORMATION
  Report Type: 
  Country: None (occurrence: None)
  Receive Date: 20101004
  Receipt Date: 20100921
  Transmission Date: 20110411
  Serious: Yes (Hospitalization)
  Sender: FDA-Public Use
  Company Number: TN-WATSON-2010-13012

PATIENT
  Age: 7 Month
  Sex: Male

DRUGS (1)
  1. IBUPROFEN TABLETS [Suspect]
     Indication: PYREXIA
     Dosage: 7.5 MG/KG SINGLE
     Route: 048

REACTIONS (1)
  - METHAEMOGLOBINAEMIA [None]
